FAERS Safety Report 5915034-5 (Version None)
Quarter: 2008Q4

REPORT INFORMATION
  Report Type: 
  Country: None (occurrence: None)
  Receive Date: 20081010
  Receipt Date: 20081002
  Transmission Date: 20090506
  Serious: Yes (Other)
  Sender: FDA-Public Use
  Company Number: US-GILEAD-2008-0018417

PATIENT
  Sex: Female

DRUGS (10)
  1. LETAIRIS [Suspect]
     Indication: PULMONARY ARTERIAL HYPERTENSION
     Route: 048
     Dates: start: 20080523
  2. TREPROSTINIL [Concomitant]
  3. COUMADIN [Concomitant]
  4. SPIRONOLACTONE [Concomitant]
  5. DILTIAZEM HCL [Concomitant]
  6. LOVASTATIN [Concomitant]
  7. NEXIUM [Concomitant]
  8. VICODIN [Concomitant]
  9. KLOR-CON [Concomitant]
  10. MTV [Concomitant]

REACTIONS (1)
  - UPPER RESPIRATORY TRACT INFECTION BACTERIAL [None]
